FAERS Safety Report 8922187 (Version 1)
Quarter: 2012Q4

REPORT INFORMATION
  Report Type: 
  Country: MX (occurrence: MX)
  Receive Date: 20121123
  Receipt Date: 20121123
  Transmission Date: 20130627
  Serious: Yes (Other)
  Sender: FDA-Public Use
  Company Number: PHHY2012MX105521

PATIENT
  Age: 71 Year
  Sex: Female

DRUGS (2)
  1. CO-DIOVAN [Suspect]
     Indication: HYPERTENSION
     Dosage: 1 DF (160 vals and 12.5 hydro), daily
     Route: 048
     Dates: start: 20120907
  2. PILOPEPTAN [Concomitant]
     Indication: ALOPECIA
     Dosage: 2 DF daily
     Route: 048

REACTIONS (2)
  - Fall [Not Recovered/Not Resolved]
  - Tooth fracture [Not Recovered/Not Resolved]
